FAERS Safety Report 10780476 (Version 3)
Quarter: 2015Q2

REPORT INFORMATION
  Report Type: Spontaneous
  Country: US (occurrence: US)
  Receive Date: 20150210
  Receipt Date: 20150428
  Transmission Date: 20150821
  Serious: Yes (Hospitalization, Other)
  Sender: FDA-Public Use
  Company Number: US-GLAXOSMITHKLINE-A1088119A

PATIENT

DRUGS (17)
  1. TYKERB [Suspect]
     Active Substance: LAPATINIB DITOSYLATE
     Indication: BREAST CANCER FEMALE
     Dosage: 1250 MG, 1D
     Route: 065
     Dates: start: 20140802, end: 20140902
  2. IRON [Concomitant]
     Active Substance: IRON
  3. PANTOPRAZOLE [Concomitant]
     Active Substance: PANTOPRAZOLE SODIUM
  4. VITAMIN D [Concomitant]
     Active Substance: CHOLECALCIFEROL
  5. SUCRALFATE. [Concomitant]
     Active Substance: SUCRALFATE
  6. FIBER [Concomitant]
     Active Substance: PSYLLIUM HUSK
  7. METOPROLOL [Concomitant]
     Active Substance: METOPROLOL
  8. CYMBALTA [Concomitant]
     Active Substance: DULOXETINE HYDROCHLORIDE
  9. OXYCONTIN [Concomitant]
     Active Substance: OXYCODONE HYDROCHLORIDE
  10. TYKERB [Suspect]
     Active Substance: LAPATINIB DITOSYLATE
     Dosage: 1250 MG, 1D
     Route: 065
     Dates: start: 20140802
  11. ALPRAZOLAM. [Concomitant]
     Active Substance: ALPRAZOLAM
  12. FENTANYL. [Concomitant]
     Active Substance: FENTANYL
  13. ZOLPIDEM [Concomitant]
     Active Substance: ZOLPIDEM\ZOLPIDEM TARTRATE
  14. CALCIUM CARBONATE. [Concomitant]
     Active Substance: CALCIUM CARBONATE
  15. XARELTO [Concomitant]
     Active Substance: RIVAROXABAN
  16. ONDANSETRON [Concomitant]
     Active Substance: ONDANSETRON
  17. CAPECITABINE. [Concomitant]
     Active Substance: CAPECITABINE

REACTIONS (4)
  - Vomiting [Unknown]
  - Hospitalisation [Unknown]
  - Fatigue [Unknown]
  - Diarrhoea [Unknown]
